FAERS Safety Report 4915961-1 (Version None)
Quarter: 2006Q1

REPORT INFORMATION
  Report Type: 
  Country: None (occurrence: None)
  Receive Date: 20060214
  Receipt Date: 20060125
  Transmission Date: 20060701
  Serious: Yes (Other)
  Sender: FDA-Public Use
  Company Number: US200601004529

PATIENT
  Age: 56 Year
  Sex: Female

DRUGS (12)
  1. CYMBALTA [Suspect]
     Indication: BONE PAIN
     Dosage: 60 MG, DAILY (1/D)
     Dates: start: 20050721
  2. EVISTA [Concomitant]
     Indication: OSTEOPOROSIS
     Dosage: DAILY (1/D), ORAL
     Route: 048
     Dates: start: 20041101, end: 20051101
  3. CORGARD [Concomitant]
  4. AMERGE [Concomitant]
  5. ALLEGRA [Concomitant]
  6. PROTONIX [Concomitant]
  7. ZELNORM /CAN/(TEGASEROD MALEATE) [Concomitant]
  8. ETHAMBUTOL (ETHAMBUTOL) [Concomitant]
  9. RIFAMPICIN [Concomitant]
  10. ZITHROMAX [Concomitant]
  11. IBANDRONATE SODIUM (IBANDREONATE SODIUM) [Concomitant]
  12. FLUCONAZOLE [Concomitant]

REACTIONS (10)
  - ACTIVITIES OF DAILY LIVING IMPAIRED [None]
  - BLINDNESS [None]
  - DRUG EFFECT DECREASED [None]
  - EYE PAIN [None]
  - FEELING ABNORMAL [None]
  - HEADACHE [None]
  - IMPAIRED DRIVING ABILITY [None]
  - LOSS OF EMPLOYMENT [None]
  - PHOTOPSIA [None]
  - VISUAL DISTURBANCE [None]
